FAERS Safety Report 13017648 (Version 1)
Quarter: 2016Q4

REPORT INFORMATION
  Report Type: Spontaneous
  Country: US (occurrence: US)
  Receive Date: 20161212
  Receipt Date: 20161212
  Transmission Date: 20170207
  Serious: Yes (Other)
  Sender: FDA-Public Use
  Company Number: None

PATIENT
  Age: 57 Year
  Sex: Male
  Weight: 97.52 kg

DRUGS (6)
  1. NEXIUM [Concomitant]
     Active Substance: ESOMEPRAZOLE MAGNESIUM
  2. REXALL SINUS NASAL PUMP MIST 12 HOUR RELIEF OXYMETAZOLINE HYDROCHLORIDE 0.05% [Suspect]
     Active Substance: OXYMETAZOLINE HYDROCHLORIDE
     Indication: NASAL CONGESTION
     Dosage: 2-3 SPRAYS IN EACH NOSTRIL NOT } 10-12 HOURS
     Route: 045
     Dates: start: 20161204
  3. ZANAFLEX [Concomitant]
     Active Substance: TIZANIDINE HYDROCHLORIDE
  4. NORVASC [Concomitant]
     Active Substance: AMLODIPINE BESYLATE
  5. ZOCOR [Concomitant]
     Active Substance: SIMVASTATIN
  6. HCTZ [Concomitant]
     Active Substance: HYDROCHLOROTHIAZIDE

REACTIONS (7)
  - Rhinalgia [None]
  - Formication [None]
  - Blood pressure increased [None]
  - Dizziness [None]
  - Nasal discomfort [None]
  - Facial pain [None]
  - Tremor [None]

NARRATIVE: CASE EVENT DATE: 20161204
